FAERS Safety Report 17005361 (Version 1)
Quarter: 2019Q4

REPORT INFORMATION
  Report Type: Report from Study
  Country: CA (occurrence: CA)
  Receive Date: 20191107
  Receipt Date: 20191107
  Transmission Date: 20200122
  Serious: Yes (Life-Threatening, Other)
  Sender: FDA-Public Use
  Company Number: CA-ASTRAZENECA-2019SF39779

PATIENT
  Sex: Female

DRUGS (1)
  1. IMFINZI [Suspect]
     Active Substance: DURVALUMAB
     Indication: NON-SMALL CELL LUNG CANCER
     Route: 042
     Dates: start: 20190708, end: 20190916

REACTIONS (11)
  - Radiation pneumonitis [Unknown]
  - Lung consolidation [Unknown]
  - Pleural effusion [Unknown]
  - Metastases to bone [Unknown]
  - Malignant neoplasm progression [Unknown]
  - Lymphadenopathy [Unknown]
  - Pericardial effusion [Unknown]
  - Lymphangiosis carcinomatosa [Unknown]
  - Atelectasis [Unknown]
  - Pneumonia [Unknown]
  - Immune-mediated pneumonitis [Unknown]
